FAERS Safety Report 25898936 (Version 1)
Quarter: 2025Q4

REPORT INFORMATION
  Report Type: Spontaneous
  Country: US (occurrence: US)
  Receive Date: 20251009
  Receipt Date: 20251009
  Transmission Date: 20260119
  Serious: No
  Sender: Haleon PLC
  Company Number: US-HALEON-2265905

PATIENT
  Age: 45 Year
  Sex: Male

DRUGS (4)
  1. NICOTINE POLACRILEX [Suspect]
     Active Substance: NICOTINE
     Indication: Smoking cessation therapy
  2. NICOTINE POLACRILEX [Suspect]
     Active Substance: NICOTINE
  3. NICOTINE POLACRILEX [Suspect]
     Active Substance: NICOTINE
  4. NICORETTE [Suspect]
     Active Substance: NICOTINE
     Indication: Smoking cessation therapy

REACTIONS (5)
  - Nicotine dependence [Unknown]
  - Product physical consistency issue [Unknown]
  - Product colour issue [Unknown]
  - Product taste abnormal [Unknown]
  - Product use issue [Unknown]
